FAERS Safety Report 23665360 (Version 1)
Quarter: 2024Q1

REPORT INFORMATION
  Report Type: Spontaneous
  Country: IT (occurrence: IT)
  Receive Date: 20240322
  Receipt Date: 20240322
  Transmission Date: 20240410
  Serious: Yes (Death)
  Sender: FDA-Public Use
  Company Number: None

PATIENT
  Age: 74 Year
  Sex: Female
  Weight: 54.885 kg

DRUGS (1)
  1. LEVOBUNOLOL HYDROCHLORIDE [Suspect]
     Active Substance: LEVOBUNOLOL HYDROCHLORIDE
     Indication: Glaucoma
     Dosage: DAILY DOSE: 1.0 GTT, TOTAL: 1.0 GTT,  0.5% COLLIRIO, SOLUZIONE MONODOSE
     Route: 057
     Dates: start: 20171027, end: 20171027

REACTIONS (4)
  - Respiratory arrest [Fatal]
  - Coma [Fatal]
  - Medication error [Fatal]
  - Bronchospasm [Fatal]

NARRATIVE: CASE EVENT DATE: 20171001
